FAERS Safety Report 4426744-3 (Version None)
Quarter: 2004Q3

REPORT INFORMATION
  Report Type: 
  Country: None (occurrence: None)
  Receive Date: 20040816
  Receipt Date: 20040804
  Transmission Date: 20050211
  Serious: Yes (Other)
  Sender: FDA-Public Use
  Company Number: US-ROCHE-376764

PATIENT
  Sex: Male
  Weight: 3 kg

DRUGS (2)
  1. ACCUTANE [Suspect]
     Indication: DRUG USE FOR UNKNOWN INDICATION
     Dates: start: 20020903, end: 20030215
  2. CONTRACEPTIVE [Concomitant]
     Dates: end: 20021115

REACTIONS (7)
  - BRADYCARDIA NEONATAL [None]
  - BREECH PRESENTATION [None]
  - CAESAREAN SECTION [None]
  - CANDIDIASIS [None]
  - LIVE BIRTH [None]
  - MATERNAL DRUGS AFFECTING FOETUS [None]
  - UMBILICAL CORD PROLAPSE [None]
